FAERS Safety Report 23595490 (Version 2)
Quarter: 2024Q1

REPORT INFORMATION
  Report Type: Spontaneous
  Country: FR (occurrence: FR)
  Receive Date: 20240305
  Receipt Date: 20240322
  Transmission Date: 20240410
  Serious: Yes (Hospitalization)
  Sender: FDA-Public Use
  Company Number: None

PATIENT
  Age: 31 Year
  Sex: Male
  Weight: 177 kg

DRUGS (3)
  1. ACETAMINOPHEN [Suspect]
     Active Substance: ACETAMINOPHEN
     Indication: Pain
     Dosage: 1 GRAM, PRN
     Route: 048
     Dates: start: 20240213
  2. IOBITRIDOL [Suspect]
     Active Substance: IOBITRIDOL
     Indication: Pericarditis
     Dosage: 1 DOSAGE FORM,1 TOTAL, 350 MILLIGRAM IODINE/MILLILITRE
     Route: 042
     Dates: start: 20240213, end: 20240213
  3. ASPIRIN DL-LYSINE [Concomitant]
     Active Substance: ASPIRIN DL-LYSINE
     Indication: Pericarditis
     Dosage: 1 GRAM (1 TOTAL) IN SACHET DOSE
     Route: 048
     Dates: start: 20240213, end: 20240213

REACTIONS (2)
  - Angioedema [Not Recovered/Not Resolved]
  - Pruritus [Not Recovered/Not Resolved]

NARRATIVE: CASE EVENT DATE: 20240213
